FAERS Safety Report 12623050 (Version 2)
Quarter: 2018Q1

REPORT INFORMATION
  Report Type: Spontaneous
  Country: US (occurrence: US)
  Receive Date: 20160804
  Receipt Date: 20180320
  Transmission Date: 20180508
  Serious: Yes (Other)
  Sender: FDA-Public Use
  Company Number: US-BAYER-2016-148989

PATIENT
  Age: 51 Year
  Sex: Female

DRUGS (3)
  1. CIPRO [Suspect]
     Active Substance: CIPROFLOXACIN HYDROCHLORIDE
     Indication: PNEUMONIA ASPIRATION
     Dosage: 750 MG
     Route: 042
     Dates: start: 20140410
  2. LEVAQUIN [Suspect]
     Active Substance: LEVOFLOXACIN
     Indication: PNEUMONIA ASPIRATION
     Dosage: 750 MG
     Dates: start: 20140410
  3. SYNTHROID [Concomitant]
     Active Substance: LEVOTHYROXINE SODIUM
     Indication: HYPOTHYROIDISM
     Dosage: 100 MG

REACTIONS (27)
  - Anxiety [None]
  - Hypoaesthesia [None]
  - Erythema [None]
  - Jaw disorder [None]
  - Self esteem decreased [None]
  - Mental disorder [Not Recovered/Not Resolved]
  - Fatigue [None]
  - Muscular weakness [None]
  - Bladder disorder [None]
  - Confusional state [Not Recovered/Not Resolved]
  - Tinnitus [None]
  - Vision blurred [None]
  - Insomnia [None]
  - Amnesia [Not Recovered/Not Resolved]
  - Mental status changes [Not Recovered/Not Resolved]
  - Pain [Not Recovered/Not Resolved]
  - Thinking abnormal [Not Recovered/Not Resolved]
  - Peripheral swelling [None]
  - Memory impairment [None]
  - Paraesthesia [Not Recovered/Not Resolved]
  - Irritability [None]
  - Muscle twitching [None]
  - Muscle disorder [Not Recovered/Not Resolved]
  - Neuropathy peripheral [Not Recovered/Not Resolved]
  - Nervous system disorder [Not Recovered/Not Resolved]
  - Burning sensation [Not Recovered/Not Resolved]
  - Dysphonia [None]

NARRATIVE: CASE EVENT DATE: 201404
